FAERS Safety Report 24562075 (Version 1)
Quarter: 2024Q4

REPORT INFORMATION
  Report Type: Spontaneous
  Country: IT (occurrence: IT)
  Receive Date: 20241029
  Receipt Date: 20241029
  Transmission Date: 20250115
  Serious: Yes (Other)
  Sender: ROCHE
  Company Number: None

PATIENT
  Age: 39 Year
  Sex: Female

DRUGS (4)
  1. MYCOPHENOLATE MOFETIL [Suspect]
     Active Substance: MYCOPHENOLATE MOFETIL
     Indication: Immunosuppressant drug therapy
     Dosage: UNK
     Route: 065
     Dates: start: 2020, end: 202111
  2. TACROLIMUS [Suspect]
     Active Substance: TACROLIMUS
     Indication: Immunosuppressant drug therapy
     Dosage: DOSE REDUCED (TARGET 6-7 NG/ML)
     Route: 065
     Dates: start: 2020, end: 202111
  3. TACROLIMUS [Suspect]
     Active Substance: TACROLIMUS
     Dosage: FURTHER DOSE REDUCED (TARGET 4-5 NG/ML)
     Route: 065
     Dates: end: 202401
  4. EVEROLIMUS [Suspect]
     Active Substance: EVEROLIMUS
     Indication: Immunosuppressant drug therapy
     Dosage: TARGET 4-6NG/ML
     Route: 065

REACTIONS (3)
  - Polyomavirus viraemia [Recovered/Resolved]
  - Renal impairment [Recovered/Resolved]
  - Polyomavirus-associated nephropathy [Unknown]

NARRATIVE: CASE EVENT DATE: 20211101
